FAERS Safety Report 7347188-0 (Version None)
Quarter: 2011Q1

REPORT INFORMATION
  Report Type: 
  Country: None (occurrence: None)
  Receive Date: 20110311
  Receipt Date: 20110304
  Transmission Date: 20110831
  Serious: Yes (Death, Hospitalization)
  Sender: FDA-Public Use
  Company Number: ES-PFIZER INC-2011046663

PATIENT
  Age: 58 Year
  Sex: Male

DRUGS (10)
  1. ACENOCOUMAROL [Concomitant]
     Indication: THROMBOSIS PROPHYLAXIS
     Dosage: UNK
     Dates: start: 19990801, end: 20060710
  2. SIMVASTATIN [Concomitant]
     Indication: HYPERCHOLESTEROLAEMIA
     Dosage: UNK
     Dates: start: 20060703
  3. SUNITINIB MALATE [Suspect]
     Indication: METASTATIC RENAL CELL CARCINOMA
     Dosage: 50 MG, DAILY, SCHEDULE 4/2
     Route: 048
     Dates: start: 20060710
  4. OMEPRAZOLE [Concomitant]
     Indication: PROPHYLAXIS
     Dosage: UNK
     Dates: start: 20060703
  5. NITROGLYCERIN [Concomitant]
     Indication: ISCHAEMIC HEART DISEASE PROPHYLAXIS
     Dosage: UNK
     Dates: start: 19990801
  6. CARVEDILOL [Concomitant]
     Indication: ISCHAEMIC HEART DISEASE PROPHYLAXIS
     Dosage: UNK
     Dates: start: 19990801
  7. DEXAMETHASONE [Concomitant]
     Indication: ANAPHYLACTIC REACTION
     Dosage: UNK
     Dates: start: 20060710
  8. TRAMADOL [Concomitant]
     Indication: PAIN
     Dosage: UNK
     Dates: start: 20060703
  9. HEPARIN [Concomitant]
     Indication: THROMBOSIS PROPHYLAXIS
     Dosage: UNK
     Dates: start: 20060711
  10. ACOVIL [Concomitant]
     Indication: HYPERTENSION
     Dosage: UNK
     Dates: start: 20060724

REACTIONS (2)
  - CONSTIPATION [None]
  - DEATH [None]
